FAERS Safety Report 5530747-5 (Version None)
Quarter: 2007Q4

REPORT INFORMATION
  Report Type: 
  Country: None (occurrence: None)
  Receive Date: 20071128
  Receipt Date: 20071128
  Transmission Date: 20080405
  Serious: Yes (Hospitalization)
  Sender: FDA-Public Use
  Company Number: None

PATIENT
  Sex: Female
  Weight: 76 kg

DRUGS (1)
  1. TAXOL [Suspect]
     Dosage: 248 MG
     Dates: start: 20071018

REACTIONS (5)
  - ATRIAL FLUTTER [None]
  - DYSPNOEA [None]
  - PERICARDIAL EFFUSION [None]
  - PERICARDITIS [None]
  - VIRAL INFECTION [None]
